FAERS Safety Report 4989275-8 (Version None)
Quarter: 2006Q1

REPORT INFORMATION
  Report Type: 
  Country: None (occurrence: None)
  Receive Date: 20060309
  Receipt Date: 20050524
  Transmission Date: 20060701
  Serious: Yes (Other)
  Sender: FDA-Public Use
  Company Number: 405887

PATIENT
  Age: 17 Year
  Sex: Male
  Weight: 120.7 kg

DRUGS (1)
  1. ACCUTANE [Suspect]
     Indication: ACNE CYSTIC
     Dosage: 40 MG 2 PER DAY ORAL
     Route: 048
     Dates: start: 20031115, end: 20040515

REACTIONS (1)
  - BLOOD TRIGLYCERIDES INCREASED [None]
